FAERS Safety Report 9204785 (Version 1)
Quarter: 2013Q2

REPORT INFORMATION
  Report Type: Spontaneous
  Country: JP (occurrence: JP)
  Receive Date: 20130402
  Receipt Date: 20130402
  Transmission Date: 20140414
  Serious: Yes (Life-Threatening, Hospitalization)
  Sender: FDA-Public Use
  Company Number: JP-GLAXOSMITHKLINE-B0250744A

PATIENT
  Age: 38 Year
  Sex: Male

DRUGS (14)
  1. PAXIL [Suspect]
     Indication: DEPRESSION
     Dosage: 40MG PER DAY
     Route: 048
     Dates: start: 200101, end: 20010602
  2. ALLOPURINOL [Suspect]
     Indication: HYPERURICAEMIA
     Dosage: 100MG PER DAY
     Route: 048
     Dates: start: 20010520, end: 20010602
  3. AMOXAPINE [Concomitant]
     Indication: DEPRESSION
     Dosage: 150MG PER DAY
     Route: 048
     Dates: start: 200009, end: 200103
  4. THEOPHYLLINE [Concomitant]
     Indication: ASTHMA
     Dosage: 400MG PER DAY
     Route: 048
     Dates: start: 199904, end: 20010602
  5. BECLOMETHASONE DIPROPIONATE [Concomitant]
     Indication: ASTHMA
     Dosage: 16APP PER DAY
     Route: 055
     Dates: start: 20010602
  6. FLUVOXAMINE MALEATE [Concomitant]
     Indication: DEPRESSION
     Dosage: 150MG PER DAY
     Route: 048
     Dates: start: 200008, end: 2001
  7. BROTIZOLAM [Concomitant]
     Indication: INSOMNIA
     Dosage: .25MG PER DAY
     Route: 048
     Dates: end: 20010602
  8. ETIZOLAM [Concomitant]
     Indication: INSOMNIA
     Dosage: 1MG PER DAY
     Dates: end: 20010602
  9. PEMIROLAST POTASSIUM [Concomitant]
     Indication: ASTHMA
     Dosage: 20MG PER DAY
     Route: 048
     Dates: end: 20010602
  10. TULOBUTEROL HYDROCHLORIDE [Concomitant]
     Indication: ASTHMA
     Dates: end: 20010602
  11. PERPHENAZINE [Concomitant]
     Indication: DEPRESSION
     Dosage: 4MG PER DAY
     Dates: start: 199909, end: 200009
  12. ETHYL LOFLAZEPATE [Concomitant]
     Indication: DEPRESSION
     Dosage: 1MG PER DAY
     Route: 048
     Dates: start: 199906, end: 200012
  13. DOSULEPIN [Concomitant]
     Route: 048
  14. BROTIZOLAM [Concomitant]
     Indication: INSOMNIA
     Dosage: .25MG PER DAY
     Route: 048
     Dates: start: 20010602

REACTIONS (12)
  - Hepatic failure [Recovered/Resolved with Sequelae]
  - Liver function test abnormal [Recovered/Resolved with Sequelae]
  - Jaundice [Recovered/Resolved with Sequelae]
  - Hepatic encephalopathy [Recovered/Resolved with Sequelae]
  - Altered state of consciousness [Recovered/Resolved with Sequelae]
  - Fatigue [Unknown]
  - Abdominal discomfort [Recovered/Resolved with Sequelae]
  - Pyrexia [Recovered/Resolved with Sequelae]
  - Hepatitis fulminant [Unknown]
  - Hepatic necrosis [Unknown]
  - Chronic hepatitis [Unknown]
  - Drug-induced liver injury [Unknown]
